FAERS Safety Report 19402190 (Version 1)
Quarter: 2021Q2

REPORT INFORMATION
  Report Type: Spontaneous
  Country: US (occurrence: US)
  Receive Date: 20210611
  Receipt Date: 20210611
  Transmission Date: 20210717
  Serious: Yes (Other)
  Sender: FDA-Public Use
  Company Number: US-NOVOPROD-800902

PATIENT
  Sex: Female

DRUGS (1)
  1. NOVOLOG [Suspect]
     Active Substance: INSULIN ASPART
     Indication: TYPE 1 DIABETES MELLITUS
     Dosage: UNK
     Route: 058

REACTIONS (9)
  - Blood glucose increased [Unknown]
  - Weight abnormal [Unknown]
  - Insulin resistance [Unknown]
  - Blood glucose fluctuation [Unknown]
  - Overweight [Unknown]
  - Somnolence [Unknown]
  - Asthenia [Unknown]
  - Hypersomnia [Unknown]
  - Disturbance in attention [Unknown]
